FAERS Safety Report 10680195 (Version 9)
Quarter: 2015Q2

REPORT INFORMATION
  Report Type: Spontaneous
  Country: US (occurrence: US)
  Receive Date: 20141229
  Receipt Date: 20150424
  Transmission Date: 20150821
  Serious: Yes (Disabling, Other)
  Sender: FDA-Public Use
  Company Number: US-009507513-1204USA04456

PATIENT
  Sex: Male
  Weight: 68.48 kg

DRUGS (1)
  1. PROPECIA [Suspect]
     Active Substance: FINASTERIDE
     Indication: ANDROGENETIC ALOPECIA
     Dosage: 1 MG, QD
     Route: 048
     Dates: start: 20070815, end: 20101010

REACTIONS (43)
  - Sexual dysfunction [Unknown]
  - Seborrhoeic dermatitis [Unknown]
  - Hypogonadism [Unknown]
  - Vision blurred [Unknown]
  - Mental status changes [Unknown]
  - Hypersomnia [Unknown]
  - Cognitive disorder [Unknown]
  - Genital pain [Unknown]
  - Illusion [Unknown]
  - Amnesia [Unknown]
  - Drug ineffective [Unknown]
  - Inguinal hernia [Unknown]
  - Insomnia [Unknown]
  - Ejaculation disorder [Unknown]
  - Organic erectile dysfunction [Unknown]
  - Depression [Unknown]
  - Photophobia [Unknown]
  - Suicidal ideation [Unknown]
  - Anxiety [Unknown]
  - Disturbance in attention [Unknown]
  - Bipolar disorder [Unknown]
  - Gastritis [Unknown]
  - Libido decreased [Unknown]
  - Dry eye [Unknown]
  - Sleep disorder [Unknown]
  - Thyroid disorder [Unknown]
  - Erythema [Recovered/Resolved]
  - Spinal pain [Unknown]
  - Weight decreased [Unknown]
  - Off label use [Unknown]
  - Memory impairment [Unknown]
  - Ulcerative keratitis [Unknown]
  - Anaemia [Unknown]
  - Rosacea [Unknown]
  - Dermatitis [Recovering/Resolving]
  - Alopecia [Unknown]
  - Vitreous loss [Unknown]
  - Photophobia [Unknown]
  - Ejaculation failure [Unknown]
  - Fatigue [Unknown]
  - Arthritis [Unknown]
  - Sexual dysfunction [Unknown]
  - Hormone level abnormal [Unknown]

NARRATIVE: CASE EVENT DATE: 20071221
